FAERS Safety Report 4973940-2 (Version None)
Quarter: 2006Q2

REPORT INFORMATION
  Report Type: 
  Country: None (occurrence: None)
  Receive Date: 20060410
  Receipt Date: 20060403
  Transmission Date: 20061013
  Serious: Yes (Hospitalization, Other)
  Sender: FDA-Public Use
  Company Number: 2006046269

PATIENT
  Age: 83 Year
  Sex: Male
  Weight: 73.4827 kg

DRUGS (6)
  1. LIPITOR [Suspect]
     Indication: BLOOD CHOLESTEROL INCREASED
     Dosage: 20 MG (20 MG, 1 IN 1 D)
  2. VIAGRA [Concomitant]
  3. PLAVIX [Concomitant]
  4. ASPIRIN [Concomitant]
  5. ALTACE [Concomitant]
  6. METOPROLOL TARTRATE [Concomitant]

REACTIONS (3)
  - CARDIAC DISORDER [None]
  - COLD SWEAT [None]
  - CORONARY ARTERY STENOSIS [None]
